FAERS Safety Report 23983307 (Version 1)
Quarter: 2024Q2

REPORT INFORMATION
  Report Type: Spontaneous
  Country: US (occurrence: US)
  Receive Date: 20240617
  Receipt Date: 20240617
  Transmission Date: 20240716
  Serious: No
  Sender: FDA-Public Use
  Company Number: US-TEVA-VS-3205183

PATIENT
  Age: 27 Year
  Sex: Male

DRUGS (1)
  1. UZEDY [Suspect]
     Active Substance: RISPERIDONE
     Indication: Schizophrenia
     Dosage: 100/0.28 MG/ML
     Route: 030
     Dates: start: 20240315

REACTIONS (1)
  - Off label use [Not Recovered/Not Resolved]
